FAERS Safety Report 6199628-0 (Version None)
Quarter: 2009Q2

REPORT INFORMATION
  Report Type: 
  Country: None (occurrence: None)
  Receive Date: 20090522
  Receipt Date: 20081118
  Transmission Date: 20091009
  Serious: No
  Sender: FDA-Public Use
  Company Number: A0755804A

PATIENT
  Age: 75 Year
  Sex: Female

DRUGS (2)
  1. BACTROBAN [Suspect]
     Dosage: 1APP TWICE PER DAY
     Route: 061
     Dates: start: 20081103, end: 20081108
  2. PRINIVIL [Concomitant]

REACTIONS (3)
  - ADVERSE EVENT [None]
  - BURNING SENSATION [None]
  - RASH ERYTHEMATOUS [None]
